FAERS Safety Report 7133303-0 (Version None)
Quarter: 2010Q4

REPORT INFORMATION
  Report Type: 
  Country: None (occurrence: None)
  Receive Date: 20101202
  Receipt Date: 20101130
  Transmission Date: 20110411
  Serious: Yes (Other)
  Sender: FDA-Public Use
  Company Number: HK-PFIZER INC-2010160860

PATIENT
  Sex: Female

DRUGS (3)
  1. LOETTE [Suspect]
     Indication: ORAL CONTRACEPTION
     Dosage: 1X/DAY, EVERYDAY
     Route: 048
     Dates: start: 20090701
  2. LOETTE [Suspect]
     Indication: ENDOMETRIOSIS
  3. VITAMINS [Suspect]
     Indication: EYE DISORDER
     Dosage: UNK
     Dates: start: 20100101, end: 20100101

REACTIONS (2)
  - BREAST HYPERPLASIA [None]
  - OEDEMA PERIPHERAL [None]
